FAERS Safety Report 20541032 (Version 1)
Quarter: 2022Q1

REPORT INFORMATION
  Report Type: Spontaneous
  Country: CA (occurrence: CA)
  Receive Date: 20220302
  Receipt Date: 20220302
  Transmission Date: 20220423
  Serious: Yes (Other)
  Sender: FDA-Public Use
  Company Number: CA-PFIZER INC-202101758517

PATIENT
  Age: 41 Year
  Sex: Male

DRUGS (7)
  1. XELJANZ [Suspect]
     Active Substance: TOFACITINIB CITRATE
     Indication: Psoriatic arthropathy
     Dosage: 5 MG, 2X/DAY
     Route: 048
     Dates: start: 20210214, end: 20220217
  2. XELJANZ [Suspect]
     Active Substance: TOFACITINIB CITRATE
     Indication: Spondyloarthropathy
     Dosage: 5 MG, 2X/DAY
     Route: 048
     Dates: start: 20210215, end: 2021
  3. XELJANZ [Suspect]
     Active Substance: TOFACITINIB CITRATE
     Dosage: 5 MG, 2X/DAY
     Route: 048
     Dates: start: 20210426, end: 20220217
  4. CANDESARTAN [Concomitant]
     Active Substance: CANDESARTAN
     Dosage: UNK
  5. AMLODIPINE [Concomitant]
     Active Substance: AMLODIPINE BESYLATE
     Dosage: 10 MG, 1X/DAY
     Route: 048
  6. HERBALS\TURMERIC [Concomitant]
     Active Substance: HERBALS\TURMERIC
     Dosage: UNK
  7. WOBENZYM [AMYLASE;BROMELAINS;CHYMOTRYPSIN;LIPASE;PANCREATIN;PAPAIN;RUT [Concomitant]
     Dosage: UNK

REACTIONS (7)
  - Dupuytren^s contracture [Unknown]
  - Paraesthesia [Unknown]
  - Arthralgia [Unknown]
  - Radiculopathy [Unknown]
  - Ear infection [Unknown]
  - Nerve compression [Unknown]
  - Drug ineffective [Unknown]
